FAERS Safety Report 7814402-4 (Version None)
Quarter: 2011Q4

REPORT INFORMATION
  Report Type: 
  Country: None (occurrence: None)
  Receive Date: 20111014
  Receipt Date: 20111005
  Transmission Date: 20120403
  Serious: Yes (Other)
  Sender: FDA-Public Use
  Company Number: PHEH2010US00606

PATIENT
  Sex: Female

DRUGS (11)
  1. ZOMETA [Suspect]
  2. LEXAPRO [Concomitant]
     Dosage: 20 MG, UNK
  3. VITAMIN D [Concomitant]
  4. ACIPHEX [Concomitant]
     Dosage: 20 MG, UNK
  5. BACTRIM [Concomitant]
  6. FASLODEX [Concomitant]
  7. KEFLEX [Concomitant]
  8. MEGESTROL ACETATE [Concomitant]
     Dosage: 40 MG, UNK
  9. VITAMIN B-12 [Concomitant]
  10. FOLIC ACID [Concomitant]
  11. DURAGESIC-100 [Concomitant]

REACTIONS (29)
  - ARTHRALGIA [None]
  - FOOT FRACTURE [None]
  - OSTEONECROSIS OF JAW [None]
  - SEBORRHOEIC KERATOSIS [None]
  - BASAL CELL CARCINOMA [None]
  - LENTIGO [None]
  - NODAL OSTEOARTHRITIS [None]
  - INJURY [None]
  - ANHEDONIA [None]
  - VITAMIN B12 DEFICIENCY [None]
  - OSTEOARTHRITIS [None]
  - BACK PAIN [None]
  - ANXIETY [None]
  - AMNESIA [None]
  - BREAST PAIN [None]
  - DYSPNOEA [None]
  - RESPIRATORY TRACT CONGESTION [None]
  - HYPERKERATOSIS [None]
  - INFECTION [None]
  - OROPHARYNGEAL PAIN [None]
  - WHEEZING [None]
  - COMPRESSION FRACTURE [None]
  - DYSURIA [None]
  - SKIN PLAQUE [None]
  - RHEUMATOID ARTHRITIS [None]
  - FATIGUE [None]
  - PAIN [None]
  - ACTINIC KERATOSIS [None]
  - PHOTODERMATOSIS [None]
